FAERS Safety Report 17816779 (Version 1)
Quarter: 2020Q2

REPORT INFORMATION
  Report Type: Report from Study
  Country: US (occurrence: US)
  Receive Date: 20200522
  Receipt Date: 20200522
  Transmission Date: 20200714
  Serious: Yes (Hospitalization, Other)
  Sender: FDA-Public Use
  Company Number: US-BIOGEN-2020BI00875050

PATIENT
  Age: 29 Year
  Sex: Female

DRUGS (9)
  1. SODIUM CHLORIDE 0.9% [Concomitant]
     Active Substance: SODIUM CHLORIDE
     Indication: PRODUCT USED FOR UNKNOWN INDICATION
     Dosage: INFUSE OVER 30 MINS
     Route: 042
     Dates: start: 20200429, end: 20200430
  2. ATIVAN [Concomitant]
     Active Substance: LORAZEPAM
     Indication: ANXIETY
     Route: 048
     Dates: start: 20200429, end: 20200513
  3. DOCUSATE [Concomitant]
     Active Substance: DOCUSATE
     Indication: PRODUCT USED FOR UNKNOWN INDICATION
     Route: 048
     Dates: start: 20200430, end: 202005
  4. TECFIDERA [Suspect]
     Active Substance: DIMETHYL FUMARATE
     Indication: MULTIPLE SCLEROSIS
     Dosage: STARTING DOSE
     Route: 048
  5. ACETAMINOPHEN. [Concomitant]
     Active Substance: ACETAMINOPHEN
     Indication: PYREXIA
     Route: 048
     Dates: start: 20200429, end: 202005
  6. SODIUM CHLORIDE 0.9% [Concomitant]
     Active Substance: SODIUM CHLORIDE
     Dosage: INFUSE OVER 30 MINS
     Route: 042
     Dates: start: 20200430, end: 20200430
  7. SOLU-MEDROL [Concomitant]
     Active Substance: METHYLPREDNISOLONE SODIUM SUCCINATE
     Route: 042
     Dates: start: 20200429, end: 20200502
  8. TECFIDERA [Suspect]
     Active Substance: DIMETHYL FUMARATE
     Dosage: MAINTENANCE DOSE
     Route: 048
  9. SOLU-MEDROL [Concomitant]
     Active Substance: METHYLPREDNISOLONE SODIUM SUCCINATE
     Indication: PRODUCT USED FOR UNKNOWN INDICATION
     Route: 042
     Dates: start: 20200502, end: 20200504

REACTIONS (12)
  - Herpes zoster [Unknown]
  - Hypoaesthesia [Unknown]
  - Cerebrovascular arteriovenous malformation [Unknown]
  - Balance disorder [Unknown]
  - Multiple sclerosis [Unknown]
  - Hemianaesthesia [Unknown]
  - Facial pain [Unknown]
  - Central nervous system lesion [Unknown]
  - Cerebrovascular accident [Unknown]
  - Vertebral osteophyte [Unknown]
  - Monocyte count abnormal [Unknown]
  - Facial discomfort [Unknown]

NARRATIVE: CASE EVENT DATE: 202004
